FAERS Safety Report 17911159 (Version 1)
Quarter: 2020Q2

REPORT INFORMATION
  Report Type: Spontaneous
  Country: DE (occurrence: DE)
  Receive Date: 20200618
  Receipt Date: 20200618
  Transmission Date: 20200714
  Serious: Yes (Hospitalization)
  Sender: FDA-Public Use
  Company Number: DE-ACCORD-185442

PATIENT
  Age: 81 Year
  Sex: Female

DRUGS (9)
  1. METOPROLOL. [Concomitant]
     Active Substance: METOPROLOL
     Dosage: 95 MG, 1-0-0.5-0, EXTENDED-RELEASE TABLETS
     Route: 048
  2. ATORVASTATIN [Concomitant]
     Active Substance: ATORVASTATIN
     Dosage: 40 MG, 0-0-1-0, TABLETS
     Route: 048
  3. CLOPIDOGREL [Suspect]
     Active Substance: CLOPIDOGREL BISULFATE
     Indication: PRODUCT USED FOR UNKNOWN INDICATION
     Dosage: 75 MG, 1-0-0-0, TABLET
     Route: 048
  4. RAMIPRIL. [Concomitant]
     Active Substance: RAMIPRIL
     Dosage: 5 MG, 1-0-1-0, TABLETS
     Route: 048
  5. LEVOTHYROXINE. [Concomitant]
     Active Substance: LEVOTHYROXINE
     Dosage: 0.075 MG, 1-0-0-0, TABLETS
     Route: 048
  6. PANTOPRAZOLE [Concomitant]
     Active Substance: PANTOPRAZOLE
     Dosage: 40 MG, 1-0-1-0, TABLETS
     Route: 048
  7. AMLODIPINE [Concomitant]
     Active Substance: AMLODIPINE BESYLATE
     Dosage: 5 MG, 0-0-1-0, TABLETS
     Route: 048
  8. ALLOPURINOL. [Concomitant]
     Active Substance: ALLOPURINOL
     Dosage: 300 MG, 0.5-0-0-0, TABLETS
     Route: 048
  9. TORASEMIDE [Concomitant]
     Active Substance: TORSEMIDE
     Dosage: 10 MG, 1-0-0-0, TABLETS
     Route: 048

REACTIONS (3)
  - General physical health deterioration [Unknown]
  - Anaemia [Unknown]
  - Syncope [Unknown]
